FAERS Safety Report 9989314 (Version 1)
Quarter: 2014Q1

REPORT INFORMATION
  Report Type: Spontaneous
  Country: CA (occurrence: CA)
  Receive Date: 20140310
  Receipt Date: 20140310
  Transmission Date: 20141002
  Serious: Yes (Death)
  Sender: FDA-Public Use
  Company Number: CA-BAYER-2014-032471

PATIENT
  Age: 41 Year
  Sex: Female

DRUGS (1)
  1. YASMIN 28 [Suspect]

REACTIONS (1)
  - Pulmonary embolism [Fatal]
